FAERS Safety Report 7483272-9 (Version None)
Quarter: 2011Q2

REPORT INFORMATION
  Report Type: 
  Country: None (occurrence: None)
  Receive Date: 20110517
  Receipt Date: 20110504
  Transmission Date: 20111010
  Serious: Yes (Life-Threatening)
  Sender: FDA-Public Use
  Company Number: GB-RANBAXY-2011R1-43966

PATIENT
  Age: 30 Year
  Sex: Female
  Weight: 58.5 kg

DRUGS (7)
  1. CITALOPRAM HYDROBROMIDE [Concomitant]
     Dosage: UNK
     Route: 065
  2. ZOPICLONE [Suspect]
     Indication: PRODUCT USED FOR UNKNOWN INDICATION
     Dosage: 7.5 MG, UNK
     Route: 048
  3. TRAZODONE HCL [Suspect]
     Indication: PRODUCT USED FOR UNKNOWN INDICATION
     Dosage: 150 MG, UNK
     Route: 048
  4. IBUPROFEN [Suspect]
     Indication: PRODUCT USED FOR UNKNOWN INDICATION
     Dosage: UNK
     Route: 065
  5. ISOTRETINOIN [Suspect]
     Indication: ACNE
     Dosage: 20 MG, QD
     Route: 048
     Dates: start: 20100201
  6. ISOTRETINOIN [Suspect]
     Dosage: 20 MG, UNK,1/2DAYS
     Route: 048
     Dates: end: 20110327
  7. NITRAZEPAM [Suspect]
     Indication: PRODUCT USED FOR UNKNOWN INDICATION
     Dosage: UNK
     Route: 065

REACTIONS (3)
  - INTENTIONAL OVERDOSE [None]
  - MULTIPLE DRUG OVERDOSE INTENTIONAL [None]
  - SUICIDE ATTEMPT [None]
